FAERS Safety Report 13120517 (Version 2)
Quarter: 2017Q1

REPORT INFORMATION
  Report Type: Spontaneous
  Country: US (occurrence: US)
  Receive Date: 20170117
  Receipt Date: 20170213
  Transmission Date: 20170428
  Serious: Yes (Other)
  Sender: FDA-Public Use
  Company Number: US-PFIZER INC-2017015934

PATIENT
  Age: 48 Year
  Sex: Male
  Weight: 78 kg

DRUGS (1)
  1. DILANTIN [Suspect]
     Active Substance: PHENYTOIN
     Indication: SEIZURE
     Dosage: 300 MG, 2X/DAY
     Route: 048

REACTIONS (11)
  - Urinary incontinence [Unknown]
  - Disorientation [Unknown]
  - Confusional state [Unknown]
  - Condition aggravated [Unknown]
  - Fall [Unknown]
  - Postictal state [Unknown]
  - Amnestic disorder [Unknown]
  - Seizure [Unknown]
  - Eye movement disorder [Unknown]
  - Drug ineffective [Unknown]
  - Tongue biting [Unknown]
